FAERS Safety Report 6064731-2 (Version None)
Quarter: 2009Q1

REPORT INFORMATION
  Report Type: 
  Country: None (occurrence: None)
  Receive Date: 20090204
  Receipt Date: 20080909
  Transmission Date: 20090719
  Serious: No
  Sender: FDA-Public Use
  Company Number: A0744717A

PATIENT
  Age: 70 Year
  Sex: Female

DRUGS (3)
  1. ARIXTRA [Suspect]
     Indication: HYPERCOAGULATION
     Dosage: 7.5MG PER DAY
     Route: 058
     Dates: start: 20080819
  2. PRAVASTATIN [Concomitant]
  3. HYZAAR [Concomitant]

REACTIONS (2)
  - ALOPECIA [None]
  - FATIGUE [None]
